FAERS Safety Report 4781456-1 (Version None)
Quarter: 2005Q3

REPORT INFORMATION
  Report Type: 
  Country: None (occurrence: None)
  Receive Date: 20050928
  Receipt Date: 20050812
  Transmission Date: 20060218
  Serious: Yes (Other)
  Sender: FDA-Public Use
  Company Number: PHFR2005GB02769

PATIENT
  Age: 58 Year
  Sex: Male
  Weight: 60 kg

DRUGS (4)
  1. CYCLOSPORINE [Suspect]
     Indication: STEM CELL TRANSPLANT
  2. VORICONAZOLE [Suspect]
     Dosage: 400 MG/DAY
     Route: 048
  3. OMEPRAZOLE [Concomitant]
     Dosage: 20 MG/DAY
     Route: 048
  4. VITAMINS [Concomitant]
     Indication: VITAMIN SUPPLEMENTATION
     Dosage: 1 CAPSULE/DAY
     Route: 048

REACTIONS (2)
  - BILIARY DILATATION [None]
  - BLOOD BILIRUBIN INCREASED [None]
